FAERS Safety Report 8454255-7 (Version None)
Quarter: 2012Q2

REPORT INFORMATION
  Report Type: 
  Country: None (occurrence: None)
  Receive Date: 20120620
  Receipt Date: 20120608
  Transmission Date: 20120825
  Serious: Yes (Hospitalization, Other)
  Sender: FDA-Public Use
  Company Number: CHPA2009US24543

PATIENT
  Sex: Male

DRUGS (1)
  1. EXCEDRIN (MIGRAINE) [Suspect]
     Indication: ARTHRALGIA
     Dosage: 2 DF, EVERY 4-6 HOURS
     Route: 048
     Dates: start: 20090325

REACTIONS (6)
  - SPINAL FRACTURE [None]
  - FALL [None]
  - THERAPEUTIC RESPONSE UNEXPECTED [None]
  - BACK PAIN [None]
  - OVERDOSE [None]
  - OFF LABEL USE [None]
